FAERS Safety Report 9544306 (Version 2)
Quarter: 2013Q3

REPORT INFORMATION
  Report Type: Spontaneous
  Country: US (occurrence: US)
  Receive Date: 20130923
  Receipt Date: 20130923
  Transmission Date: 20140515
  Serious: No
  Sender: FDA-Public Use
  Company Number: US-GLAXOSMITHKLINE-A0947336A

PATIENT
  Age: 25 Year
  Sex: Male

DRUGS (1)
  1. ABREVA [Suspect]
     Indication: ORAL HERPES
     Route: 061
     Dates: start: 20110605, end: 20110609

REACTIONS (4)
  - Application site erythema [Not Recovered/Not Resolved]
  - Application site paraesthesia [Unknown]
  - Skin hypopigmentation [Unknown]
  - Application site reaction [Unknown]
